FAERS Safety Report 9260464 (Version 3)
Quarter: 2013Q3

REPORT INFORMATION
  Report Type: Report from Study
  Country: JP (occurrence: JP)
  Receive Date: 20130429
  Receipt Date: 20130710
  Transmission Date: 20140515
  Serious: Yes (Hospitalization)
  Sender: FDA-Public Use
  Company Number: JP-AMGEN-JPNCT2013029434

PATIENT
  Age: 79 Year
  Sex: Male
  Weight: 65 kg

DRUGS (24)
  1. DARBEPOETIN ALFA [Suspect]
     Indication: NEPHROGENIC ANAEMIA
     Dosage: 30 MUG, Q2WK
     Route: 058
     Dates: start: 20110308
  2. DARBEPOETIN ALFA [Suspect]
     Dosage: 30 MUG, Q2WK
     Route: 058
     Dates: start: 20120305, end: 20120612
  3. DARBEPOETIN ALFA [Suspect]
     Dosage: 30 MUG, QD
     Route: 058
     Dates: start: 20120629, end: 20120629
  4. DARBEPOETIN ALFA [Suspect]
     Dosage: 30 MUG, Q2WK
     Route: 058
     Dates: start: 20120717, end: 20120914
  5. DARBEPOETIN ALFA [Suspect]
     Dosage: 40 MUG, QD
     Route: 058
     Dates: start: 20120928, end: 20120928
  6. DARBEPOETIN ALFA [Suspect]
     Dosage: 40 MUG, Q2WK
     Route: 058
     Dates: start: 20121015, end: 20121211
  7. WARFARIN [Suspect]
     Indication: ATRIAL FIBRILLATION
     Dosage: 3 MG, QD
     Route: 048
     Dates: start: 20110520, end: 20121213
  8. CONIEL [Concomitant]
     Dosage: UNK
     Route: 048
  9. TANATRIL [Concomitant]
     Dosage: UNK
     Route: 048
  10. RASILEZ [Concomitant]
     Dosage: UNK
     Route: 048
  11. PROTECADIN [Concomitant]
     Dosage: UNK
     Route: 048
  12. NATRIX [Concomitant]
     Dosage: UNK
     Route: 048
  13. ZYLORIC [Concomitant]
     Dosage: UNK
     Route: 048
  14. FERROMIA [Concomitant]
     Dosage: UNK
     Route: 048
  15. URSO [Concomitant]
     Dosage: UNK
     Route: 048
  16. ARTIST [Concomitant]
     Dosage: UNK
     Route: 048
  17. KALIMATE [Concomitant]
     Dosage: UNK
     Route: 048
  18. SELARA [Concomitant]
     Dosage: UNK
     Route: 048
  19. LASIX [Concomitant]
     Dosage: UNK
     Route: 048
  20. MUCOSTA [Concomitant]
     Dosage: UNK
     Route: 048
  21. FOLIAMIN [Concomitant]
     Dosage: UNK
     Route: 048
  22. NEXIUM [Concomitant]
     Dosage: UNK
     Route: 048
  23. DIART [Concomitant]
     Dosage: UNK
     Route: 048
  24. GLAKAY [Concomitant]
     Dosage: UNK
     Route: 048

REACTIONS (3)
  - Upper gastrointestinal haemorrhage [Recovered/Resolved]
  - Anaemia [Unknown]
  - Peripheral artery thrombosis [Recovered/Resolved]
